FAERS Safety Report 19014743 (Version 1)
Quarter: 2021Q1

REPORT INFORMATION
  Report Type: Spontaneous
  Country: GB (occurrence: GB)
  Receive Date: 20210317
  Receipt Date: 20210317
  Transmission Date: 20210420
  Serious: Yes (Other)
  Sender: FDA-Public Use
  Company Number: GB-DRREDDYS-GER/UKI/21/0133003

PATIENT
  Age: 74 Year
  Sex: Female

DRUGS (2)
  1. OMEPRAZOLE 40MG CAPSULES, DR. REDDY^S [Suspect]
     Active Substance: OMEPRAZOLE
     Indication: ULCER
     Dates: end: 20210225
  2. OMEPRAZOLE 20MG CAPSULES, DR. REDDY^S [Suspect]
     Active Substance: OMEPRAZOLE
     Indication: ULCER
     Dates: start: 2003

REACTIONS (11)
  - Deafness [Unknown]
  - Candida infection [Unknown]
  - Irritable bowel syndrome [Unknown]
  - White blood cell count decreased [Unknown]
  - Dyspepsia [Unknown]
  - Liver disorder [Unknown]
  - Osteoporosis [Unknown]
  - Vision blurred [Unknown]
  - Therapy cessation [Unknown]
  - Blood sodium decreased [Unknown]
  - Gastrointestinal pain [Unknown]
